FAERS Safety Report 4475168-1 (Version None)
Quarter: 2004Q4

REPORT INFORMATION
  Report Type: 
  Country: None (occurrence: None)
  Receive Date: 20041012
  Receipt Date: 20040924
  Transmission Date: 20050328
  Serious: Yes (Death, Hospitalization)
  Sender: FDA-Public Use
  Company Number: 239580

PATIENT
  Age: 61 Year
  Sex: Male

DRUGS (2)
  1. NOVONORM (REPAGLINIDE) TABLET, 1.0MG [Suspect]
     Indication: DIABETES MELLITUS
     Dates: start: 20040331, end: 20040415
  2. INSULATARD (INSULIN HUMAN) [Concomitant]

REACTIONS (7)
  - ABDOMINAL DISTENSION [None]
  - BLOOD GLUCOSE DECREASED [None]
  - CONDITION AGGRAVATED [None]
  - CONFUSIONAL STATE [None]
  - FATIGUE [None]
  - JAUNDICE [None]
  - WEIGHT INCREASED [None]
